FAERS Safety Report 17998677 (Version 1)
Quarter: 2020Q3

REPORT INFORMATION
  Report Type: Spontaneous
  Country: US (occurrence: US)
  Receive Date: 20200709
  Receipt Date: 20200709
  Transmission Date: 20201103
  Serious: No
  Sender: FDA-Public Use
  Company Number: US-BAYER-2020-137959

PATIENT
  Sex: Female

DRUGS (1)
  1. CLARITIN [Suspect]
     Active Substance: LORATADINE
     Indication: EYE PRURITUS
     Dosage: 1 DF, QD
     Route: 048
     Dates: start: 20200707, end: 20200707

REACTIONS (4)
  - Nervousness [Recovered/Resolved]
  - Drug effective for unapproved indication [Recovered/Resolved]
  - Hypoaesthesia oral [Recovered/Resolved]
  - Oropharyngeal discomfort [Recovered/Resolved]

NARRATIVE: CASE EVENT DATE: 202007
